FAERS Safety Report 8472506-X (Version None)
Quarter: 2012Q2

REPORT INFORMATION
  Report Type: 
  Country: None (occurrence: None)
  Receive Date: 20120627
  Receipt Date: 20120127
  Transmission Date: 20120825
  Serious: No
  Sender: FDA-Public Use
  Company Number: US-AMGEN-USASP2012005601

PATIENT
  Age: 18 Year
  Sex: Female

DRUGS (1)
  1. EPOGEN [Suspect]
     Indication: TRANSPLANT
     Dosage: 9000 IU, 3 TIMES/WK

REACTIONS (2)
  - INJECTION SITE PAIN [None]
  - INCORRECT ROUTE OF DRUG ADMINISTRATION [None]
